FAERS Safety Report 13738850 (Version 5)
Quarter: 2024Q2

REPORT INFORMATION
  Report Type: Spontaneous
  Country: JP (occurrence: JP)
  Receive Date: 20170710
  Receipt Date: 20240430
  Transmission Date: 20240716
  Serious: Yes (Hospitalization, Other)
  Sender: FDA-Public Use
  Company Number: JP-SA-2017SA122451

PATIENT
  Age: 54 Year
  Sex: Female
  Weight: 38 kg

DRUGS (6)
  1. TAXOTERE [Suspect]
     Active Substance: DOCETAXEL
     Indication: Adjuvant therapy
     Dosage: UNK UNK, 1X
     Route: 041
     Dates: start: 201603, end: 201603
  2. TAXOTERE [Suspect]
     Active Substance: DOCETAXEL
     Indication: Oesophageal squamous cell carcinoma stage II
     Dosage: 60 MG, QCY
     Route: 041
     Dates: start: 20160215, end: 20160215
  3. CISPLATIN [Concomitant]
     Active Substance: CISPLATIN
     Indication: Adjuvant therapy
     Dosage: 6 MG, 1X
     Route: 065
     Dates: start: 20160215, end: 20160219
  4. CISPLATIN [Concomitant]
     Active Substance: CISPLATIN
     Indication: Oesophageal squamous cell carcinoma stage II
     Dosage: UNK, 1X
     Route: 065
     Dates: start: 201603, end: 201603
  5. FLUOROURACIL [Concomitant]
     Active Substance: FLUOROURACIL
     Indication: Adjuvant therapy
     Route: 065
     Dates: start: 20160215, end: 20160219
  6. FLUOROURACIL [Concomitant]
     Active Substance: FLUOROURACIL
     Indication: Oesophageal squamous cell carcinoma stage II
     Dosage: UNK, 1X
     Route: 065
     Dates: start: 201603, end: 201603

REACTIONS (5)
  - Nephritis bacterial [Recovered/Resolved]
  - Neutrophil count decreased [Recovered/Resolved]
  - Pyrexia [Recovered/Resolved]
  - Abdominal mass [Recovered/Resolved]
  - Tenderness [Recovered/Resolved]

NARRATIVE: CASE EVENT DATE: 20160101
